FAERS Safety Report 8849747 (Version 1)
Quarter: 2012Q4

REPORT INFORMATION
  Report Type: 
  Country: CH (occurrence: CH)
  Receive Date: 20121019
  Receipt Date: 20121019
  Transmission Date: 20130627
  Serious: Yes (Hospitalization)
  Sender: FDA-Public Use
  Company Number: CH-BRISTOL-MYERS SQUIBB COMPANY-17029554

PATIENT
  Age: 60 Year
  Sex: Female
  Weight: 72 kg

DRUGS (7)
  1. ABILIFY [Suspect]
     Indication: BIPOLAR DISORDER
     Route: 048
     Dates: start: 201201, end: 20120822
  2. LITHIOFOR [Suspect]
     Indication: BIPOLAR DISORDER
     Route: 048
     Dates: start: 201205, end: 20120822
  3. DISTRANEURINE [Concomitant]
     Route: 048
     Dates: start: 2012, end: 20120824
  4. STILNOX [Concomitant]
     Route: 048
     Dates: start: 2012, end: 20120824
  5. VESICARE [Concomitant]
     Route: 048
     Dates: end: 20120824
  6. ASPIRIN CARDIO [Concomitant]
     Route: 048
  7. EUTHYROX [Concomitant]
     Route: 048

REACTIONS (2)
  - Catatonia [Recovered/Resolved]
  - Overdose [Unknown]
